FAERS Safety Report 9384971 (Version 4)
Quarter: 2013Q3

REPORT INFORMATION
  Report Type: Report from Study
  Country: US (occurrence: US)
  Receive Date: 20130705
  Receipt Date: 20130820
  Transmission Date: 20140515
  Serious: Yes (Hospitalization, Other)
  Sender: FDA-Public Use
  Company Number: US-ACTELION-A-NJ2013-85331

PATIENT
  Age: 90 Year
  Sex: Female

DRUGS (1)
  1. TRACLEER [Suspect]
     Indication: PULMONARY ARTERIAL HYPERTENSION
     Dosage: UNK
     Route: 048

REACTIONS (5)
  - Bacterial sepsis [Recovering/Resolving]
  - Blood culture positive [Recovering/Resolving]
  - Serratia infection [Recovering/Resolving]
  - Bacterial infection [Recovering/Resolving]
  - Upper respiratory tract infection [Recovering/Resolving]
